FAERS Safety Report 5387146-9 (Version None)
Quarter: 2007Q3

REPORT INFORMATION
  Report Type: 
  Country: None (occurrence: None)
  Receive Date: 20070711
  Receipt Date: 20070628
  Transmission Date: 20080115
  Serious: Yes (Other)
  Sender: FDA-Public Use
  Company Number: 2007SP012621

PATIENT
  Age: 63 Year
  Sex: Female
  Weight: 77.1115 kg

DRUGS (8)
  1. CLARITIN [Suspect]
     Indication: HYPERSENSITIVITY
     Dosage: 1 DF; QD; PO
     Route: 048
     Dates: start: 20050101, end: 20070617
  2. CLARITIN [Suspect]
     Indication: LACRIMATION INCREASED
     Dosage: 1 DF; QD; PO
     Route: 048
     Dates: start: 20050101, end: 20070617
  3. CLARITIN [Suspect]
     Indication: SNEEZING
     Dosage: 1 DF; QD; PO
     Route: 048
     Dates: start: 20050101, end: 20070617
  4. CLARITIN [Suspect]
     Indication: LACRIMATION INCREASED
     Dosage: PO
     Route: 048
     Dates: end: 20070615
  5. CLARITIN [Suspect]
     Indication: SNEEZING
     Dosage: PO
     Route: 048
     Dates: end: 20070615
  6. SUDAFED 12 HOUR [Suspect]
     Indication: LACRIMATION INCREASED
     Dosage: PO
     Route: 048
  7. SUDAFED 12 HOUR [Suspect]
     Indication: SNEEZING
     Dosage: PO
     Route: 048
  8. GLAUCOMA MEDICATION [Concomitant]

REACTIONS (4)
  - CONJUNCTIVITIS [None]
  - GLAUCOMA [None]
  - MYDRIASIS [None]
  - RETINAL DISORDER [None]
